FAERS Safety Report 15864829 (Version 3)
Quarter: 2025Q2

REPORT INFORMATION
  Report Type: Spontaneous
  Country: CA (occurrence: CA)
  Receive Date: 20190124
  Receipt Date: 20250430
  Transmission Date: 20250717
  Serious: Yes (Other)
  Sender: Haleon PLC
  Company Number: CA-PFIZER INC-2019030849

PATIENT
  Age: 53 Year
  Sex: Male

DRUGS (453)
  1. NEXIUM 24HR [Suspect]
     Active Substance: ESOMEPRAZOLE MAGNESIUM
     Indication: Gastritis
  2. PANADOL [Suspect]
     Active Substance: ACETAMINOPHEN
     Indication: Ill-defined disorder
  3. MESALAMINE [Suspect]
     Active Substance: MESALAMINE
     Indication: Colitis ulcerative
     Route: 048
     Dates: start: 20160101, end: 20161001
  4. MESALAMINE [Suspect]
     Active Substance: MESALAMINE
     Route: 048
     Dates: start: 20160101, end: 20161001
  5. MESALAMINE [Suspect]
     Active Substance: MESALAMINE
     Route: 048
     Dates: start: 20160101, end: 20161001
  6. MESALAMINE [Suspect]
     Active Substance: MESALAMINE
     Route: 048
     Dates: start: 20160101, end: 20161001
  7. MESALAMINE [Suspect]
     Active Substance: MESALAMINE
     Route: 048
     Dates: start: 20160101
  8. MESALAMINE [Suspect]
     Active Substance: MESALAMINE
     Route: 048
     Dates: start: 20160101
  9. MESALAMINE [Suspect]
     Active Substance: MESALAMINE
     Route: 048
     Dates: start: 20160101
  10. MESALAMINE [Suspect]
     Active Substance: MESALAMINE
     Route: 048
     Dates: start: 20160101
  11. MESALAMINE [Suspect]
     Active Substance: MESALAMINE
     Route: 048
     Dates: start: 20160101, end: 20161001
  12. MESALAMINE [Suspect]
     Active Substance: MESALAMINE
     Route: 048
  13. MESALAMINE [Suspect]
     Active Substance: MESALAMINE
     Route: 048
     Dates: start: 20160101, end: 20161001
  14. MESALAMINE [Suspect]
     Active Substance: MESALAMINE
     Route: 048
     Dates: start: 20160101
  15. MESALAMINE [Suspect]
     Active Substance: MESALAMINE
     Route: 048
     Dates: start: 20160101, end: 20161001
  16. MESALAMINE [Suspect]
     Active Substance: MESALAMINE
     Route: 048
     Dates: start: 20160101, end: 20161001
  17. MESALAMINE [Suspect]
     Active Substance: MESALAMINE
  18. MESALAMINE [Suspect]
     Active Substance: MESALAMINE
     Dosage: 50 MILLIGRAM, 1 DOSE PER 1 D
  19. MESALAMINE [Suspect]
     Active Substance: MESALAMINE
     Dosage: 1 DOSAGE FORM, 1 DOSE PER 1 D
  20. MESALAMINE [Suspect]
     Active Substance: MESALAMINE
     Dosage: 6 DOSAGE FORM, 2 DOSE PER 1 D
  21. MESALAMINE [Suspect]
     Active Substance: MESALAMINE
     Dosage: 6 DOSAGE FORM, 2 DOSE PER 1 D
  22. MESALAMINE [Suspect]
     Active Substance: MESALAMINE
     Dosage: 6 DOSAGE FORM, 2 DOSE PER 1 D
  23. MESALAMINE [Suspect]
     Active Substance: MESALAMINE
     Route: 048
  24. MESALAMINE [Suspect]
     Active Substance: MESALAMINE
  25. MESALAMINE [Suspect]
     Active Substance: MESALAMINE
  26. MESALAMINE [Suspect]
     Active Substance: MESALAMINE
     Dosage: 40 MILLIGRAM, 1 DOSE PER 1 D
  27. MESALAMINE [Suspect]
     Active Substance: MESALAMINE
     Dosage: 4.8 GRAM, 1 DOSE PER 1 D
  28. MESALAMINE [Suspect]
     Active Substance: MESALAMINE
     Dosage: 4.8 GRAM, 1 DOSE PER 1 D
  29. MESALAMINE [Suspect]
     Active Substance: MESALAMINE
  30. MESALAMINE [Suspect]
     Active Substance: MESALAMINE
     Dosage: 30 DOSAGE FORM, 2 DOSE PER 1 D
  31. MESALAMINE [Suspect]
     Active Substance: MESALAMINE
  32. MESALAMINE [Suspect]
     Active Substance: MESALAMINE
  33. MESALAMINE [Suspect]
     Active Substance: MESALAMINE
  34. MESALAMINE [Suspect]
     Active Substance: MESALAMINE
  35. MESALAMINE [Suspect]
     Active Substance: MESALAMINE
     Route: 048
  36. SULFASALAZINE [Concomitant]
     Active Substance: SULFASALAZINE
     Indication: Product used for unknown indication
     Dates: start: 20090101, end: 20160101
  37. SULFASALAZINE [Concomitant]
     Active Substance: SULFASALAZINE
  38. SULFASALAZINE [Concomitant]
     Active Substance: SULFASALAZINE
     Dosage: 5 MILLIGRAM, 1 DOSE PER 1D
  39. SULFASALAZINE [Concomitant]
     Active Substance: SULFASALAZINE
  40. SULFASALAZINE [Concomitant]
     Active Substance: SULFASALAZINE
  41. SULFASALAZINE [Concomitant]
     Active Substance: SULFASALAZINE
  42. SULFASALAZINE [Concomitant]
     Active Substance: SULFASALAZINE
     Dosage: 3 MILLIGRAM, 1 DOSE PER 1D
  43. SULFASALAZINE [Concomitant]
     Active Substance: SULFASALAZINE
     Dates: start: 20160101, end: 20160101
  44. INFLIXIMAB [Suspect]
     Active Substance: INFLIXIMAB
     Indication: Colitis ulcerative
     Dosage: UNK
     Dates: start: 20170119
  45. INFLIXIMAB [Suspect]
     Active Substance: INFLIXIMAB
     Indication: Crohn^s disease
     Dosage: UNK
  46. INFLIXIMAB [Suspect]
     Active Substance: INFLIXIMAB
     Route: 042
  47. INFLIXIMAB [Suspect]
     Active Substance: INFLIXIMAB
     Dosage: UNK
  48. INFLIXIMAB [Suspect]
     Active Substance: INFLIXIMAB
     Route: 048
  49. INFLIXIMAB [Suspect]
     Active Substance: INFLIXIMAB
     Dosage: UNK
  50. INFLIXIMAB [Suspect]
     Active Substance: INFLIXIMAB
     Dosage: UNK
  51. INFLIXIMAB [Suspect]
     Active Substance: INFLIXIMAB
     Dosage: UNK
  52. INFLIXIMAB [Suspect]
     Active Substance: INFLIXIMAB
     Dates: start: 20170101, end: 20170901
  53. HYDROCORTISONE [Suspect]
     Active Substance: HYDROCORTISONE
     Indication: Colitis ulcerative
     Route: 048
  54. HYDROCORTISONE [Suspect]
     Active Substance: HYDROCORTISONE
     Indication: Crohn^s disease
     Route: 048
  55. HYDROCORTISONE [Suspect]
     Active Substance: HYDROCORTISONE
     Route: 048
  56. HYDROCORTISONE [Suspect]
     Active Substance: HYDROCORTISONE
     Route: 048
  57. HYDROCORTISONE [Suspect]
     Active Substance: HYDROCORTISONE
     Route: 048
  58. HYDROCORTISONE [Suspect]
     Active Substance: HYDROCORTISONE
     Route: 048
  59. HYDROCORTISONE [Suspect]
     Active Substance: HYDROCORTISONE
     Route: 042
  60. HYDROCORTISONE [Suspect]
     Active Substance: HYDROCORTISONE
  61. HYDROCORTISONE [Suspect]
     Active Substance: HYDROCORTISONE
  62. HYDROCORTISONE [Suspect]
     Active Substance: HYDROCORTISONE
  63. HYDROCORTISONE [Suspect]
     Active Substance: HYDROCORTISONE
  64. HYDROCORTISONE [Suspect]
     Active Substance: HYDROCORTISONE
  65. HYDROCORTISONE [Suspect]
     Active Substance: HYDROCORTISONE
  66. METHOTREXATE [Concomitant]
     Active Substance: METHOTREXATE
     Indication: Colitis ulcerative
  67. METHOTREXATE [Concomitant]
     Active Substance: METHOTREXATE
  68. EMPAGLIFLOZIN [Concomitant]
     Active Substance: EMPAGLIFLOZIN
     Indication: Ill-defined disorder
  69. ASACOL [Suspect]
     Active Substance: MESALAMINE
     Indication: Colitis ulcerative
     Dosage: 4.8 G, 1X/DAY, DOSE FORM: ENTERIC COATED TABLET
  70. ASACOL [Suspect]
     Active Substance: MESALAMINE
     Dosage: 2.4 GRAM, 1 DOSE PER 1 D, DOSE FORM: ENTERIC COATED TABLET
  71. ASACOL [Suspect]
     Active Substance: MESALAMINE
     Dosage: 6 DOSAGE FORM, 1 DOSE PER 1 D, DOSE FORM: ENTERIC COATED TABLET
  72. ASACOL [Suspect]
     Active Substance: MESALAMINE
     Dosage: 6 DOSAGE FORM, 1 DOSE PER 1 D, DOSE FORM: ENTERIC COATED TABLET
     Dates: start: 20161001
  73. ASACOL [Suspect]
     Active Substance: MESALAMINE
     Dosage: 6 DOSAGE FORM, 1 DOSE PER 1 D, DOSE FORM: ENTERIC COATED TABLET
     Dates: start: 20161001
  74. ASACOL [Suspect]
     Active Substance: MESALAMINE
  75. ASACOL [Suspect]
     Active Substance: MESALAMINE
  76. PREDNISONE [Suspect]
     Active Substance: PREDNISONE
     Indication: Colitis ulcerative
  77. PREDNISONE [Suspect]
     Active Substance: PREDNISONE
  78. PREDNISONE [Suspect]
     Active Substance: PREDNISONE
  79. PREDNISONE [Suspect]
     Active Substance: PREDNISONE
  80. PREDNISONE [Suspect]
     Active Substance: PREDNISONE
  81. PREDNISONE [Suspect]
     Active Substance: PREDNISONE
  82. INFLIXIMAB [Concomitant]
     Active Substance: INFLIXIMAB
     Indication: Crohn^s disease
  83. ACETAMINOPHEN [Suspect]
     Active Substance: ACETAMINOPHEN
     Indication: Product used for unknown indication
  84. ACETAMINOPHEN [Suspect]
     Active Substance: ACETAMINOPHEN
     Indication: Ill-defined disorder
  85. CALCIUM\CHOLECALCIFEROL [Concomitant]
     Active Substance: CALCIUM\CHOLECALCIFEROL
     Indication: Product used for unknown indication
  86. CANDESARTAN [Suspect]
     Active Substance: CANDESARTAN
     Indication: Colitis ulcerative
     Route: 048
     Dates: start: 20230412
  87. CHOLECALCIFEROL [Suspect]
     Active Substance: CHOLECALCIFEROL
     Indication: Product used for unknown indication
  88. CHOLECALCIFEROL [Suspect]
     Active Substance: CHOLECALCIFEROL
  89. MEBEVERINE HYDROCHLORIDE [Suspect]
     Active Substance: MEBEVERINE HYDROCHLORIDE
     Indication: Product used for unknown indication
  90. COMIRNATY (TOZINAMERAN) [Suspect]
     Active Substance: TOZINAMERAN
     Indication: Product used for unknown indication
  91. COMIRNATY (TOZINAMERAN) [Suspect]
     Active Substance: TOZINAMERAN
  92. CORTIFOAM [Suspect]
     Active Substance: HYDROCORTISONE ACETATE
     Indication: Colitis ulcerative
     Dosage: DOSE FORM: AEROSOL, FOAM
  93. CORTIFOAM [Suspect]
     Active Substance: HYDROCORTISONE ACETATE
     Dosage: DOSE FORM: AEROSOL, FOAM
  94. CORTIFOAM [Suspect]
     Active Substance: HYDROCORTISONE ACETATE
     Dosage: DOSE FORM: AEROSOL, FOAM
  95. CORTIFOAM [Suspect]
     Active Substance: HYDROCORTISONE ACETATE
     Dosage: DOSE FORM: AEROSOL, FOAM
  96. CORTIFOAM [Suspect]
     Active Substance: HYDROCORTISONE ACETATE
     Dosage: DOSE FORM: AEROSOL, FOAM
  97. CORTIFOAM [Suspect]
     Active Substance: HYDROCORTISONE ACETATE
     Dosage: DOSE FORM: AEROSOL, FOAM
  98. CORTIFOAM [Suspect]
     Active Substance: HYDROCORTISONE ACETATE
     Dosage: DOSE FORM: AEROSOL, FOAM
  99. BUDESONIDE [Suspect]
     Active Substance: BUDESONIDE
     Indication: Product used for unknown indication
  100. BUDESONIDE [Suspect]
     Active Substance: BUDESONIDE
     Route: 048
  101. BUDESONIDE [Suspect]
     Active Substance: BUDESONIDE
     Route: 048
  102. BUDESONIDE [Suspect]
     Active Substance: BUDESONIDE
  103. BUDESONIDE [Suspect]
     Active Substance: BUDESONIDE
  104. BUDESONIDE [Suspect]
     Active Substance: BUDESONIDE
     Route: 048
  105. BUDESONIDE [Suspect]
     Active Substance: BUDESONIDE
     Route: 048
  106. BUDESONIDE [Suspect]
     Active Substance: BUDESONIDE
     Route: 048
  107. BUDESONIDE [Suspect]
     Active Substance: BUDESONIDE
     Route: 048
  108. BUDESONIDE [Suspect]
     Active Substance: BUDESONIDE
     Route: 048
  109. BUDESONIDE [Suspect]
     Active Substance: BUDESONIDE
     Route: 048
  110. BUDESONIDE [Suspect]
     Active Substance: BUDESONIDE
     Route: 048
  111. CORTISONE [Suspect]
     Active Substance: CORTISONE
     Indication: Crohn^s disease
  112. CORTISONE [Suspect]
     Active Substance: CORTISONE
     Indication: Colitis ulcerative
  113. CORTISONE [Suspect]
     Active Substance: CORTISONE
  114. CORTISONE [Suspect]
     Active Substance: CORTISONE
  115. CORTISONE [Suspect]
     Active Substance: CORTISONE
  116. CORTISONE [Suspect]
     Active Substance: CORTISONE
  117. CORTISONE [Suspect]
     Active Substance: CORTISONE
  118. CORTISONE [Suspect]
     Active Substance: CORTISONE
  119. CORTISONE [Suspect]
     Active Substance: CORTISONE
  120. DAPAGLIFLOZIN [Suspect]
     Active Substance: DAPAGLIFLOZIN
     Indication: Ill-defined disorder
  121. DAPAGLIFLOZIN [Suspect]
     Active Substance: DAPAGLIFLOZIN
     Indication: Cardiac failure chronic
  122. DESOXIMETASONE [Suspect]
     Active Substance: DESOXIMETASONE
     Indication: Crohn^s disease
     Route: 048
  123. DESOXIMETASONE [Suspect]
     Active Substance: DESOXIMETASONE
     Route: 048
  124. DESOXIMETASONE [Suspect]
     Active Substance: DESOXIMETASONE
     Route: 048
  125. DESOXIMETASONE [Suspect]
     Active Substance: DESOXIMETASONE
     Route: 048
  126. DORZOLAMIDE [Concomitant]
     Active Substance: DORZOLAMIDE
     Indication: Product used for unknown indication
  127. ENTYVIO [Suspect]
     Active Substance: VEDOLIZUMAB
     Indication: Product used for unknown indication
  128. ENTYVIO [Suspect]
     Active Substance: VEDOLIZUMAB
     Indication: Deep vein thrombosis
     Route: 048
  129. ENTYVIO [Suspect]
     Active Substance: VEDOLIZUMAB
     Indication: Colitis ulcerative
     Route: 048
  130. ENTYVIO [Suspect]
     Active Substance: VEDOLIZUMAB
  131. ENTYVIO [Suspect]
     Active Substance: VEDOLIZUMAB
     Route: 042
  132. ENTYVIO [Suspect]
     Active Substance: VEDOLIZUMAB
  133. ENTYVIO [Suspect]
     Active Substance: VEDOLIZUMAB
     Route: 042
  134. ENTYVIO [Suspect]
     Active Substance: VEDOLIZUMAB
     Route: 048
  135. EPINEPHRINE [Suspect]
     Active Substance: EPINEPHRINE
     Indication: Product used for unknown indication
  136. ESCITALOPRAM [Suspect]
     Active Substance: ESCITALOPRAM OXALATE
     Indication: Product used for unknown indication
  137. ESCITALOPRAM [Suspect]
     Active Substance: ESCITALOPRAM OXALATE
  138. FELODIPINE [Suspect]
     Active Substance: FELODIPINE
     Indication: Hypertension
     Dosage: DOSE FORM: SLOW RELEASE TABLET
     Route: 048
  139. FELODIPINE [Suspect]
     Active Substance: FELODIPINE
     Route: 048
  140. FELODIPINE [Suspect]
     Active Substance: FELODIPINE
     Route: 048
  141. FESOTERODINE FUMARATE [Concomitant]
     Active Substance: FESOTERODINE FUMARATE
     Indication: Product used for unknown indication
  142. FOLIC ACID [Concomitant]
     Active Substance: FOLIC ACID
     Indication: Product used for unknown indication
  143. FUROSEMIDE [Suspect]
     Active Substance: FUROSEMIDE
     Indication: Product used for unknown indication
  144. FUROSEMIDE [Suspect]
     Active Substance: FUROSEMIDE
  145. GABAPENTIN [Suspect]
     Active Substance: GABAPENTIN
     Indication: Product used for unknown indication
     Dosage: 300 MILLIGRAM, 3 DOSE PER 1 D / 900 MG 1 DAY
  146. GABAPENTIN [Suspect]
     Active Substance: GABAPENTIN
  147. LANSOPRAZOLE [Concomitant]
     Active Substance: LANSOPRAZOLE
     Indication: Product used for unknown indication
  148. LATANOPROST [Concomitant]
     Active Substance: LATANOPROST
     Indication: Product used for unknown indication
  149. LATANOPROST [Concomitant]
     Active Substance: LATANOPROST
  150. LYRICA [Concomitant]
     Active Substance: PREGABALIN
     Indication: Product used for unknown indication
  151. LEVOTHYROXINE SODIUM [Suspect]
     Active Substance: LEVOTHYROXINE SODIUM
     Indication: Product used for unknown indication
  152. LEVOTHYROXINE SODIUM [Suspect]
     Active Substance: LEVOTHYROXINE SODIUM
     Dosage: 100 MILLIGRAM, 1 DOSE PER 1 D
  153. LISDEXAMFETAMINE DIMESYLATE [Suspect]
     Active Substance: LISDEXAMFETAMINE DIMESYLATE
     Indication: Product used for unknown indication
  154. MESALAMINE [Suspect]
     Active Substance: MESALAMINE
     Indication: Colitis ulcerative
  155. MESALAMINE [Suspect]
     Active Substance: MESALAMINE
  156. MESALAMINE [Suspect]
     Active Substance: MESALAMINE
     Route: 048
  157. MESALAMINE [Suspect]
     Active Substance: MESALAMINE
  158. MESALAMINE [Suspect]
     Active Substance: MESALAMINE
  159. MESALAMINE [Suspect]
     Active Substance: MESALAMINE
     Route: 048
  160. MESALAMINE [Suspect]
     Active Substance: MESALAMINE
     Route: 048
  161. MESALAMINE [Suspect]
     Active Substance: MESALAMINE
  162. MESALAMINE [Suspect]
     Active Substance: MESALAMINE
     Route: 048
  163. MESALAMINE [Suspect]
     Active Substance: MESALAMINE
  164. MESALAMINE [Suspect]
     Active Substance: MESALAMINE
  165. MESALAMINE [Suspect]
     Active Substance: MESALAMINE
  166. MESALAMINE [Suspect]
     Active Substance: MESALAMINE
  167. MESALAMINE [Suspect]
     Active Substance: MESALAMINE
  168. MESALAMINE [Suspect]
     Active Substance: MESALAMINE
  169. MESALAMINE [Suspect]
     Active Substance: MESALAMINE
  170. MESALAMINE [Suspect]
     Active Substance: MESALAMINE
     Route: 048
  171. MESALAMINE [Suspect]
     Active Substance: MESALAMINE
  172. MESALAMINE [Suspect]
     Active Substance: MESALAMINE
  173. MESALAMINE [Suspect]
     Active Substance: MESALAMINE
  174. MESALAMINE [Suspect]
     Active Substance: MESALAMINE
  175. MESALAMINE [Suspect]
     Active Substance: MESALAMINE
  176. MESALAMINE [Suspect]
     Active Substance: MESALAMINE
     Route: 048
  177. MESALAMINE [Suspect]
     Active Substance: MESALAMINE
     Route: 048
  178. MESALAMINE [Suspect]
     Active Substance: MESALAMINE
  179. MESALAMINE [Suspect]
     Active Substance: MESALAMINE
  180. MESALAMINE [Suspect]
     Active Substance: MESALAMINE
  181. MESALAMINE [Suspect]
     Active Substance: MESALAMINE
  182. MESALAMINE [Suspect]
     Active Substance: MESALAMINE
  183. MESALAMINE [Suspect]
     Active Substance: MESALAMINE
  184. MESALAMINE [Suspect]
     Active Substance: MESALAMINE
  185. MESALAMINE [Suspect]
     Active Substance: MESALAMINE
  186. MESALAMINE [Suspect]
     Active Substance: MESALAMINE
  187. MESALAMINE [Suspect]
     Active Substance: MESALAMINE
  188. MESALAMINE [Suspect]
     Active Substance: MESALAMINE
  189. MESALAMINE [Suspect]
     Active Substance: MESALAMINE
     Route: 048
  190. MESALAMINE [Suspect]
     Active Substance: MESALAMINE
  191. MESALAMINE [Suspect]
     Active Substance: MESALAMINE
  192. MESALAMINE [Suspect]
     Active Substance: MESALAMINE
  193. MESALAMINE [Suspect]
     Active Substance: MESALAMINE
  194. MESALAMINE [Suspect]
     Active Substance: MESALAMINE
  195. MESALAMINE [Suspect]
     Active Substance: MESALAMINE
     Route: 048
  196. MESALAMINE [Suspect]
     Active Substance: MESALAMINE
     Route: 048
  197. MESALAMINE [Suspect]
     Active Substance: MESALAMINE
     Route: 048
  198. MESALAMINE [Suspect]
     Active Substance: MESALAMINE
     Route: 048
  199. MESALAMINE [Suspect]
     Active Substance: MESALAMINE
     Route: 048
  200. MESALAMINE [Suspect]
     Active Substance: MESALAMINE
     Route: 048
  201. MESALAMINE [Suspect]
     Active Substance: MESALAMINE
     Route: 048
  202. MESALAMINE [Suspect]
     Active Substance: MESALAMINE
  203. MESALAMINE [Suspect]
     Active Substance: MESALAMINE
  204. METFORMIN [Suspect]
     Active Substance: METFORMIN HYDROCHLORIDE
     Indication: Product used for unknown indication
  205. METFORMIN [Suspect]
     Active Substance: METFORMIN HYDROCHLORIDE
  206. AMINOSALICYLIC ACID [Suspect]
     Active Substance: AMINOSALICYLIC ACID
     Indication: Deep vein thrombosis
  207. AMINOSALICYLIC ACID [Suspect]
     Active Substance: AMINOSALICYLIC ACID
     Indication: Colitis ulcerative
  208. PRAVASTATIN SODIUM [Concomitant]
     Active Substance: PRAVASTATIN SODIUM
     Indication: Product used for unknown indication
  209. RAMIPRIL [Concomitant]
     Active Substance: RAMIPRIL
     Indication: Product used for unknown indication
  210. REMICADE [Suspect]
     Active Substance: INFLIXIMAB
     Indication: Crohn^s disease
  211. REMICADE [Suspect]
     Active Substance: INFLIXIMAB
     Indication: Colitis ulcerative
  212. REMICADE [Suspect]
     Active Substance: INFLIXIMAB
  213. REMICADE [Suspect]
     Active Substance: INFLIXIMAB
  214. RIVAROXABAN [Concomitant]
     Active Substance: RIVAROXABAN
     Indication: Product used for unknown indication
  215. ROSUVASTATIN [Suspect]
     Active Substance: ROSUVASTATIN
     Indication: Blood cholesterol increased
  216. ROSUVASTATIN [Suspect]
     Active Substance: ROSUVASTATIN
  217. ROSUVASTATIN [Suspect]
     Active Substance: ROSUVASTATIN
  218. MESALAMINE [Suspect]
     Active Substance: MESALAMINE
     Indication: Product used for unknown indication
     Route: 048
  219. SULFASALAZINE [Suspect]
     Active Substance: SULFASALAZINE
     Indication: Colitis ulcerative
  220. SULFASALAZINE [Suspect]
     Active Substance: SULFASALAZINE
     Indication: Arthritis
     Route: 048
  221. SULFASALAZINE [Suspect]
     Active Substance: SULFASALAZINE
     Dates: start: 20160101, end: 20160101
  222. SULFASALAZINE [Suspect]
     Active Substance: SULFASALAZINE
     Dates: start: 20090101, end: 20160101
  223. SULFASALAZINE [Suspect]
     Active Substance: SULFASALAZINE
     Route: 048
  224. SULFASALAZINE [Suspect]
     Active Substance: SULFASALAZINE
     Route: 048
  225. SULFASALAZINE [Suspect]
     Active Substance: SULFASALAZINE
  226. SULFASALAZINE [Suspect]
     Active Substance: SULFASALAZINE
  227. TAMSULOSIN [Concomitant]
     Active Substance: TAMSULOSIN
     Indication: Product used for unknown indication
  228. TETRAHYDROZOLINE HYDROCHLORIDE [Concomitant]
     Active Substance: TETRAHYDROZOLINE HYDROCHLORIDE
     Indication: Product used for unknown indication
  229. VYVANSE [Suspect]
     Active Substance: LISDEXAMFETAMINE DIMESYLATE
     Indication: Attention deficit hyperactivity disorder
  230. WARFARIN [Suspect]
     Active Substance: WARFARIN
     Indication: Deep vein thrombosis
  231. WARFARIN [Suspect]
     Active Substance: WARFARIN
     Indication: Colitis ulcerative
  232. WARFARIN [Suspect]
     Active Substance: WARFARIN
  233. WARFARIN [Suspect]
     Active Substance: WARFARIN
  234. WARFARIN [Suspect]
     Active Substance: WARFARIN
  235. WARFARIN [Suspect]
     Active Substance: WARFARIN
  236. WARFARIN SODIUM [Suspect]
     Active Substance: WARFARIN SODIUM
     Indication: Deep vein thrombosis
  237. WARFARIN SODIUM [Suspect]
     Active Substance: WARFARIN SODIUM
     Indication: Colitis ulcerative
     Route: 048
  238. WARFARIN SODIUM [Suspect]
     Active Substance: WARFARIN SODIUM
  239. WARFARIN SODIUM [Suspect]
     Active Substance: WARFARIN SODIUM
     Route: 048
  240. XELJANZ [Concomitant]
     Active Substance: TOFACITINIB CITRATE
     Indication: Product used for unknown indication
  241. XELJANZ [Concomitant]
     Active Substance: TOFACITINIB CITRATE
  242. XELJANZ [Concomitant]
     Active Substance: TOFACITINIB CITRATE
  243. XELJANZ [Concomitant]
     Active Substance: TOFACITINIB CITRATE
  244. XELJANZ [Concomitant]
     Active Substance: TOFACITINIB CITRATE
  245. MOVICOL [Concomitant]
     Active Substance: POLYETHYLENE GLYCOL 3350\POTASSIUM CHLORIDE\SODIUM BICARBONATE\SODIUM CHLORIDE
     Indication: Product used for unknown indication
  246. MOVICOL [Concomitant]
     Active Substance: POLYETHYLENE GLYCOL 3350\POTASSIUM CHLORIDE\SODIUM BICARBONATE\SODIUM CHLORIDE
  247. MOVICOL [Concomitant]
     Active Substance: POLYETHYLENE GLYCOL 3350\POTASSIUM CHLORIDE\SODIUM BICARBONATE\SODIUM CHLORIDE
  248. ZEROBASE [Concomitant]
     Indication: Product used for unknown indication
  249. ZEROBASE [Concomitant]
  250. ZEROBASE [Concomitant]
  251. ZEROBASE [Concomitant]
  252. POLYETHYLENE GLYCOL 3350\POTASSIUM CHLORIDE\SODIUM BICARBONATE\SODIUM [Concomitant]
     Active Substance: POLYETHYLENE GLYCOL 3350\POTASSIUM CHLORIDE\SODIUM BICARBONATE\SODIUM CHLORIDE
     Indication: Product used for unknown indication
  253. POLYETHYLENE GLYCOL 3350\POTASSIUM CHLORIDE\SODIUM BICARBONATE\SODIUM [Concomitant]
     Active Substance: POLYETHYLENE GLYCOL 3350\POTASSIUM CHLORIDE\SODIUM BICARBONATE\SODIUM CHLORIDE
  254. POLYETHYLENE GLYCOL 3350\POTASSIUM CHLORIDE\SODIUM BICARBONATE\SODIUM [Concomitant]
     Active Substance: POLYETHYLENE GLYCOL 3350\POTASSIUM CHLORIDE\SODIUM BICARBONATE\SODIUM CHLORIDE
  255. POLYETHYLENE GLYCOL 3350\POTASSIUM CHLORIDE\SODIUM BICARBONATE\SODIUM [Concomitant]
     Active Substance: POLYETHYLENE GLYCOL 3350\POTASSIUM CHLORIDE\SODIUM BICARBONATE\SODIUM CHLORIDE
  256. RENNIE [Concomitant]
     Indication: Product used for unknown indication
  257. RENNIE [Concomitant]
  258. RENNIE [Concomitant]
  259. RENNIE [Concomitant]
  260. RENNIE [Concomitant]
  261. VEDOLIZUMAB [Suspect]
     Active Substance: VEDOLIZUMAB
     Indication: Deep vein thrombosis
     Route: 048
  262. VEDOLIZUMAB [Suspect]
     Active Substance: VEDOLIZUMAB
     Indication: Colitis ulcerative
     Route: 042
  263. VEDOLIZUMAB [Suspect]
     Active Substance: VEDOLIZUMAB
     Route: 042
  264. LISDEXAMFETAMINE DIMESYLATE [Suspect]
     Active Substance: LISDEXAMFETAMINE DIMESYLATE
     Indication: Product used for unknown indication
  265. LISDEXAMFETAMINE DIMESYLATE [Suspect]
     Active Substance: LISDEXAMFETAMINE DIMESYLATE
  266. LISDEXAMFETAMINE DIMESYLATE [Suspect]
     Active Substance: LISDEXAMFETAMINE DIMESYLATE
  267. LISDEXAMFETAMINE DIMESYLATE [Suspect]
     Active Substance: LISDEXAMFETAMINE DIMESYLATE
  268. LISDEXAMFETAMINE DIMESYLATE [Suspect]
     Active Substance: LISDEXAMFETAMINE DIMESYLATE
  269. LISDEXAMFETAMINE DIMESYLATE [Suspect]
     Active Substance: LISDEXAMFETAMINE DIMESYLATE
  270. ALBENDAZOLE [Suspect]
     Active Substance: ALBENDAZOLE
     Indication: Colitis ulcerative
     Route: 042
  271. ALBENDAZOLE [Suspect]
     Active Substance: ALBENDAZOLE
     Indication: Deep vein thrombosis
     Route: 042
  272. ALBENDAZOLE [Suspect]
     Active Substance: ALBENDAZOLE
     Route: 042
  273. ALBENDAZOLE [Suspect]
     Active Substance: ALBENDAZOLE
     Route: 048
  274. ALBENDAZOLE [Suspect]
     Active Substance: ALBENDAZOLE
     Route: 042
  275. ALBENDAZOLE [Suspect]
     Active Substance: ALBENDAZOLE
     Route: 042
  276. ALBENDAZOLE [Suspect]
     Active Substance: ALBENDAZOLE
     Route: 042
  277. ALBENDAZOLE [Suspect]
     Active Substance: ALBENDAZOLE
     Route: 042
  278. ALBENDAZOLE [Suspect]
     Active Substance: ALBENDAZOLE
     Route: 042
  279. ALBENDAZOLE [Suspect]
     Active Substance: ALBENDAZOLE
     Route: 042
  280. ALBENDAZOLE [Suspect]
     Active Substance: ALBENDAZOLE
     Route: 042
  281. ALBENDAZOLE [Suspect]
     Active Substance: ALBENDAZOLE
     Route: 042
  282. ALBENDAZOLE [Suspect]
     Active Substance: ALBENDAZOLE
     Route: 042
  283. ALBENDAZOLE [Suspect]
     Active Substance: ALBENDAZOLE
     Route: 042
  284. ALBENDAZOLE [Suspect]
     Active Substance: ALBENDAZOLE
     Route: 042
  285. TOZINAMERAN [Suspect]
     Active Substance: TOZINAMERAN
     Indication: Product used for unknown indication
     Dates: start: 20220322, end: 20220322
  286. CLOBETASONE BUTYRATE [Concomitant]
     Active Substance: CLOBETASONE BUTYRATE
     Indication: Ill-defined disorder
  287. CLOBETASONE BUTYRATE [Concomitant]
     Active Substance: CLOBETASONE BUTYRATE
  288. CLOBETASONE BUTYRATE [Concomitant]
     Active Substance: CLOBETASONE BUTYRATE
  289. NAPHAZOLINE HYDROCHLORIDE [Concomitant]
     Active Substance: NAPHAZOLINE HYDROCHLORIDE
     Indication: Ill-defined disorder
  290. NAPHAZOLINE HYDROCHLORIDE [Concomitant]
     Active Substance: NAPHAZOLINE HYDROCHLORIDE
  291. POLYETHYLENE GLYCOLS [Concomitant]
     Active Substance: POLYETHYLENE GLYCOLS
     Indication: Product used for unknown indication
  292. WARFARIN SODIUM [Suspect]
     Active Substance: WARFARIN SODIUM
     Indication: Colitis ulcerative
  293. WARFARIN SODIUM [Suspect]
     Active Substance: WARFARIN SODIUM
     Indication: Deep vein thrombosis
     Route: 048
  294. WARFARIN SODIUM [Suspect]
     Active Substance: WARFARIN SODIUM
     Route: 048
  295. WARFARIN SODIUM [Suspect]
     Active Substance: WARFARIN SODIUM
     Route: 048
  296. WARFARIN SODIUM [Suspect]
     Active Substance: WARFARIN SODIUM
     Route: 048
  297. WARFARIN SODIUM [Suspect]
     Active Substance: WARFARIN SODIUM
     Dosage: FIRST ADMIN DATE: JUL-2017
     Route: 048
  298. WARFARIN SODIUM [Suspect]
     Active Substance: WARFARIN SODIUM
  299. WARFARIN SODIUM [Suspect]
     Active Substance: WARFARIN SODIUM
     Route: 048
  300. WARFARIN SODIUM [Suspect]
     Active Substance: WARFARIN SODIUM
     Route: 048
  301. WARFARIN SODIUM [Suspect]
     Active Substance: WARFARIN SODIUM
     Dosage: 8 DOSAGE FORM, Q8WK, FIRST ADMIN DATE: 2017-07
     Route: 048
  302. WARFARIN SODIUM [Suspect]
     Active Substance: WARFARIN SODIUM
  303. PARAFFIN [Concomitant]
     Active Substance: PARAFFIN
     Indication: Product used for unknown indication
  304. CALCIUM CARBONATE\CHOLECALCIFEROL [Concomitant]
     Active Substance: CALCIUM CARBONATE\CHOLECALCIFEROL
     Indication: Product used for unknown indication
  305. ACETAMINOPHEN [Concomitant]
     Active Substance: ACETAMINOPHEN
     Indication: Product used for unknown indication
  306. CITALOPRAM [Suspect]
     Active Substance: CITALOPRAM
     Indication: Ill-defined disorder
  307. CITALOPRAM [Suspect]
     Active Substance: CITALOPRAM
  308. CITALOPRAM [Suspect]
     Active Substance: CITALOPRAM
  309. CITALOPRAM [Suspect]
     Active Substance: CITALOPRAM
  310. CITALOPRAM [Concomitant]
     Active Substance: CITALOPRAM
     Indication: Product used for unknown indication
  311. GAVISCON [Concomitant]
     Active Substance: ALUMINUM HYDROXIDE\MAGNESIUM CARBONATE
     Indication: Product used for unknown indication
  312. LATANOPROST [Concomitant]
     Active Substance: LATANOPROST
     Indication: Product used for unknown indication
  313. LATANOPROST [Concomitant]
     Active Substance: LATANOPROST
  314. LATANOPROST [Concomitant]
     Active Substance: LATANOPROST
  315. LATANOPROST [Concomitant]
     Active Substance: LATANOPROST
  316. CALCIUM CARBONATE [Concomitant]
     Active Substance: CALCIUM CARBONATE
     Indication: Product used for unknown indication
  317. AMLODIPINE [Concomitant]
     Active Substance: AMLODIPINE BESYLATE
     Indication: Product used for unknown indication
  318. AMLODIPINE [Concomitant]
     Active Substance: AMLODIPINE BESYLATE
  319. AMLODIPINE [Concomitant]
     Active Substance: AMLODIPINE BESYLATE
  320. CRESTOR [Suspect]
     Active Substance: ROSUVASTATIN CALCIUM
     Indication: Ill-defined disorder
  321. CRESTOR [Suspect]
     Active Substance: ROSUVASTATIN CALCIUM
     Indication: Blood cholesterol increased
  322. CRESTOR [Suspect]
     Active Substance: ROSUVASTATIN CALCIUM
  323. CRESTOR [Suspect]
     Active Substance: ROSUVASTATIN CALCIUM
  324. CRESTOR [Suspect]
     Active Substance: ROSUVASTATIN CALCIUM
  325. CRESTOR [Suspect]
     Active Substance: ROSUVASTATIN CALCIUM
  326. CRESTOR [Suspect]
     Active Substance: ROSUVASTATIN CALCIUM
  327. CRESTOR [Suspect]
     Active Substance: ROSUVASTATIN CALCIUM
  328. CRESTOR [Suspect]
     Active Substance: ROSUVASTATIN CALCIUM
  329. CRESTOR [Suspect]
     Active Substance: ROSUVASTATIN CALCIUM
  330. TOFACITINIB CITRATE [Concomitant]
     Active Substance: TOFACITINIB CITRATE
     Indication: Ill-defined disorder
  331. TOFACITINIB CITRATE [Concomitant]
     Active Substance: TOFACITINIB CITRATE
  332. TOFACITINIB CITRATE [Concomitant]
     Active Substance: TOFACITINIB CITRATE
  333. TOFACITINIB CITRATE [Concomitant]
     Active Substance: TOFACITINIB CITRATE
  334. MINERAL OIL [Concomitant]
     Active Substance: MINERAL OIL
     Indication: Ill-defined disorder
  335. MINERAL OIL [Concomitant]
     Active Substance: MINERAL OIL
  336. MINERAL OIL [Concomitant]
     Active Substance: MINERAL OIL
  337. MINERAL OIL [Concomitant]
     Active Substance: MINERAL OIL
  338. INFLECTRA [Suspect]
     Active Substance: INFLIXIMAB-DYYB
     Indication: Crohn^s disease
     Route: 042
  339. INFLECTRA [Suspect]
     Active Substance: INFLIXIMAB-DYYB
     Indication: Colitis ulcerative
     Route: 048
  340. INFLECTRA [Suspect]
     Active Substance: INFLIXIMAB-DYYB
  341. INFLECTRA [Suspect]
     Active Substance: INFLIXIMAB-DYYB
  342. INFLECTRA [Suspect]
     Active Substance: INFLIXIMAB-DYYB
     Route: 042
  343. INFLECTRA [Suspect]
     Active Substance: INFLIXIMAB-DYYB
     Route: 042
  344. INFLECTRA [Suspect]
     Active Substance: INFLIXIMAB-DYYB
     Dosage: 5 MILLIGRAM PER KILOGRAM, 1 DOSE PER 8W
     Route: 042
  345. INFLECTRA [Suspect]
     Active Substance: INFLIXIMAB-DYYB
     Route: 042
  346. INFLECTRA [Suspect]
     Active Substance: INFLIXIMAB-DYYB
     Dosage: UNK, 1 DOSE PER 6W
     Route: 042
  347. INFLECTRA [Suspect]
     Active Substance: INFLIXIMAB-DYYB
  348. INFLECTRA [Suspect]
     Active Substance: INFLIXIMAB-DYYB
  349. INFLECTRA [Suspect]
     Active Substance: INFLIXIMAB-DYYB
     Dosage: UNK, 1 DOSE PER 8W
  350. INFLECTRA [Suspect]
     Active Substance: INFLIXIMAB-DYYB
     Route: 048
  351. INFLECTRA [Suspect]
     Active Substance: INFLIXIMAB-DYYB
     Route: 048
  352. INFLECTRA [Suspect]
     Active Substance: INFLIXIMAB-DYYB
     Route: 048
  353. ADALIMUMAB [Suspect]
     Active Substance: ADALIMUMAB
     Indication: Deep vein thrombosis
  354. ADALIMUMAB [Suspect]
     Active Substance: ADALIMUMAB
     Indication: Crohn^s disease
  355. ADALIMUMAB [Suspect]
     Active Substance: ADALIMUMAB
  356. ADALIMUMAB [Suspect]
     Active Substance: ADALIMUMAB
  357. AMLODIPINE BESYLATE [Concomitant]
     Active Substance: AMLODIPINE BESYLATE
     Indication: Product used for unknown indication
  358. ASPIRIN [Suspect]
     Active Substance: ASPIRIN
     Indication: Ill-defined disorder
  359. ASTRAZENECA COVID-19 VACCINE [Suspect]
     Active Substance: AZD-1222
     Indication: COVID-19 immunisation
  360. ASTRAZENECA COVID-19 VACCINE [Suspect]
     Active Substance: AZD-1222
  361. ASTRAZENECA COVID-19 VACCINE [Suspect]
     Active Substance: AZD-1222
  362. ASTRAZENECA COVID-19 VACCINE [Suspect]
     Active Substance: AZD-1222
  363. ASTRAZENECA COVID-19 VACCINE [Suspect]
     Active Substance: AZD-1222
  364. ASTRAZENECA COVID-19 VACCINE [Suspect]
     Active Substance: AZD-1222
  365. ASTRAZENECA COVID-19 VACCINE [Suspect]
     Active Substance: AZD-1222
  366. ASTRAZENECA COVID-19 VACCINE [Suspect]
     Active Substance: AZD-1222
  367. ASTRAZENECA COVID-19 VACCINE [Suspect]
     Active Substance: AZD-1222
  368. ASTRAZENECA COVID-19 VACCINE [Suspect]
     Active Substance: AZD-1222
  369. ASTRAZENECA COVID-19 VACCINE [Suspect]
     Active Substance: AZD-1222
  370. ASTRAZENECA COVID-19 VACCINE [Suspect]
     Active Substance: AZD-1222
  371. ASTRAZENECA COVID-19 VACCINE [Suspect]
     Active Substance: AZD-1222
  372. ASTRAZENECA COVID-19 VACCINE [Suspect]
     Active Substance: AZD-1222
  373. ASTRAZENECA COVID-19 VACCINE [Suspect]
     Active Substance: AZD-1222
  374. ASTRAZENECA COVID-19 VACCINE [Suspect]
     Active Substance: AZD-1222
  375. ASTRAZENECA COVID-19 VACCINE [Suspect]
     Active Substance: AZD-1222
  376. ATORVASTATIN CALCIUM [Concomitant]
     Active Substance: ATORVASTATIN CALCIUM
     Indication: Product used for unknown indication
  377. BETNOVATE [Concomitant]
     Active Substance: BETAMETHASONE
     Indication: Product used for unknown indication
  378. BISOPROLOL [Concomitant]
     Active Substance: BISOPROLOL
     Indication: Product used for unknown indication
  379. BUDESONIDE [Suspect]
     Active Substance: BUDESONIDE
     Indication: Colitis ulcerative
     Route: 048
  380. BUDESONIDE [Suspect]
     Active Substance: BUDESONIDE
     Route: 048
  381. BUDESONIDE [Suspect]
     Active Substance: BUDESONIDE
     Route: 048
  382. BUDESONIDE [Suspect]
     Active Substance: BUDESONIDE
     Route: 048
  383. BUDESONIDE [Suspect]
     Active Substance: BUDESONIDE
     Route: 048
  384. BUDESONIDE [Suspect]
     Active Substance: BUDESONIDE
     Route: 048
  385. BUDESONIDE [Suspect]
     Active Substance: BUDESONIDE
     Route: 048
  386. BUDESONIDE [Suspect]
     Active Substance: BUDESONIDE
     Route: 048
  387. BUDESONIDE [Suspect]
     Active Substance: BUDESONIDE
     Route: 048
  388. BUDESONIDE [Suspect]
     Active Substance: BUDESONIDE
     Route: 048
  389. BUDESONIDE [Suspect]
     Active Substance: BUDESONIDE
     Route: 048
  390. BUDESONIDE [Suspect]
     Active Substance: BUDESONIDE
     Route: 048
  391. BUDESONIDE [Suspect]
     Active Substance: BUDESONIDE
     Route: 048
  392. BUDESONIDE [Suspect]
     Active Substance: BUDESONIDE
     Route: 048
  393. BUDESONIDE [Suspect]
     Active Substance: BUDESONIDE
  394. BUDESONIDE [Suspect]
     Active Substance: BUDESONIDE
  395. BUDESONIDE [Suspect]
     Active Substance: BUDESONIDE
     Route: 048
  396. BUDESONIDE [Suspect]
     Active Substance: BUDESONIDE
     Route: 048
  397. BUDESONIDE [Suspect]
     Active Substance: BUDESONIDE
  398. BUDESONIDE [Suspect]
     Active Substance: BUDESONIDE
     Route: 048
  399. BUDESONIDE [Suspect]
     Active Substance: BUDESONIDE
     Route: 048
  400. BUDESONIDE [Suspect]
     Active Substance: BUDESONIDE
  401. BUDESONIDE [Suspect]
     Active Substance: BUDESONIDE
     Route: 048
  402. BUDESONIDE [Suspect]
     Active Substance: BUDESONIDE
  403. BUDESONIDE [Suspect]
     Active Substance: BUDESONIDE
     Route: 048
  404. BUDESONIDE [Suspect]
     Active Substance: BUDESONIDE
     Route: 048
  405. BUDESONIDE [Suspect]
     Active Substance: BUDESONIDE
     Route: 048
  406. BUDESONIDE [Suspect]
     Active Substance: BUDESONIDE
  407. BUDESONIDE [Suspect]
     Active Substance: BUDESONIDE
  408. BUDESONIDE [Suspect]
     Active Substance: BUDESONIDE
     Route: 048
  409. BUDESONIDE [Suspect]
     Active Substance: BUDESONIDE
  410. BUDESONIDE [Suspect]
     Active Substance: BUDESONIDE
     Route: 048
  411. HUMIRA [Suspect]
     Active Substance: ADALIMUMAB
     Indication: Crohn^s disease
  412. HUMIRA [Suspect]
     Active Substance: ADALIMUMAB
  413. HUMIRA [Suspect]
     Active Substance: ADALIMUMAB
  414. HUMIRA [Suspect]
     Active Substance: ADALIMUMAB
  415. HUMIRA [Suspect]
     Active Substance: ADALIMUMAB
  416. HYDROCORTISONE ACETATE [Suspect]
     Active Substance: HYDROCORTISONE ACETATE
     Indication: Crohn^s disease
     Route: 048
  417. HYDROCORTISONE ACETATE [Suspect]
     Active Substance: HYDROCORTISONE ACETATE
     Indication: Colitis ulcerative
  418. HYDROCORTISONE ACETATE [Suspect]
     Active Substance: HYDROCORTISONE ACETATE
     Route: 048
  419. HYDROCORTISONE ACETATE [Suspect]
     Active Substance: HYDROCORTISONE ACETATE
     Route: 048
  420. HYDROCORTISONE ACETATE [Suspect]
     Active Substance: HYDROCORTISONE ACETATE
  421. HYDROCORTISONE ACETATE [Suspect]
     Active Substance: HYDROCORTISONE ACETATE
     Route: 048
  422. HYDROCORTISONE ACETATE [Suspect]
     Active Substance: HYDROCORTISONE ACETATE
  423. HYDROCORTISONE ACETATE [Suspect]
     Active Substance: HYDROCORTISONE ACETATE
  424. HYDROCORTISONE ACETATE [Suspect]
     Active Substance: HYDROCORTISONE ACETATE
  425. HYDROCORTISONE ACETATE [Suspect]
     Active Substance: HYDROCORTISONE ACETATE
  426. HYDROCORTISONE ACETATE [Suspect]
     Active Substance: HYDROCORTISONE ACETATE
  427. HYDROCORTISONE [Suspect]
     Active Substance: HYDROCORTISONE
     Indication: Crohn^s disease
  428. HYDROCORTISONE [Suspect]
     Active Substance: HYDROCORTISONE
     Indication: Colitis ulcerative
     Route: 048
  429. HYDROCORTISONE [Suspect]
     Active Substance: HYDROCORTISONE
  430. HYDROCORTISONE [Suspect]
     Active Substance: HYDROCORTISONE
  431. HYDROCORTISONE [Suspect]
     Active Substance: HYDROCORTISONE
     Route: 048
  432. HYDROCORTISONE [Suspect]
     Active Substance: HYDROCORTISONE
  433. HYDROCORTISONE [Suspect]
     Active Substance: HYDROCORTISONE
     Route: 048
  434. HYDROCORTISONE [Suspect]
     Active Substance: HYDROCORTISONE
     Route: 048
  435. HYDROCORTISONE [Suspect]
     Active Substance: HYDROCORTISONE
     Route: 048
  436. HYDROCORTISONE [Suspect]
     Active Substance: HYDROCORTISONE
  437. HYDROCORTISONE [Suspect]
     Active Substance: HYDROCORTISONE
     Route: 048
  438. HYDROCORTISONE [Suspect]
     Active Substance: HYDROCORTISONE
  439. NITROFURANTOIN [Concomitant]
     Active Substance: NITROFURANTOIN
     Indication: Product used for unknown indication
  440. OMEPRAZOLE [Suspect]
     Active Substance: OMEPRAZOLE
     Indication: Product used for unknown indication
  441. OXYCODONE [Suspect]
     Active Substance: OXYCODONE
     Indication: Product used for unknown indication
  442. ASPIRIN [Concomitant]
     Active Substance: ASPIRIN
     Indication: Product used for unknown indication
  443. ASPIRIN [Concomitant]
     Active Substance: ASPIRIN
  444. ASPIRIN [Concomitant]
     Active Substance: ASPIRIN
  445. OMEPRAZOLE [Concomitant]
     Active Substance: OMEPRAZOLE
     Indication: Product used for unknown indication
  446. OMEPRAZOLE [Concomitant]
     Active Substance: OMEPRAZOLE
  447. OMEPRAZOLE [Concomitant]
     Active Substance: OMEPRAZOLE
  448. ATORVASTATIN [Concomitant]
     Active Substance: ATORVASTATIN
     Indication: Product used for unknown indication
  449. ATORVASTATIN [Concomitant]
     Active Substance: ATORVASTATIN
  450. ALGINIC ACID [Concomitant]
     Active Substance: ALGINIC ACID
     Indication: Product used for unknown indication
  451. MEBEVERINE HYDROCHLORIDE [Suspect]
     Active Substance: MEBEVERINE HYDROCHLORIDE
     Indication: Product used for unknown indication
  452. MEBEVERINE HYDROCHLORIDE [Suspect]
     Active Substance: MEBEVERINE HYDROCHLORIDE
  453. MEBEVERINE HYDROCHLORIDE [Suspect]
     Active Substance: MEBEVERINE HYDROCHLORIDE

REACTIONS (53)
  - Systemic lupus erythematosus [Not Recovered/Not Resolved]
  - Weight decreased [Not Recovered/Not Resolved]
  - Bronchiectasis [Not Recovered/Not Resolved]
  - Impaired quality of life [Unknown]
  - Condition aggravated [Unknown]
  - Frequent bowel movements [Not Recovered/Not Resolved]
  - Drug ineffective [Unknown]
  - Off label use [Not Recovered/Not Resolved]
  - Pain [Not Recovered/Not Resolved]
  - Pain in extremity [Not Recovered/Not Resolved]
  - Palpitations [Not Recovered/Not Resolved]
  - Parosmia [Not Recovered/Not Resolved]
  - Product use in unapproved indication [Not Recovered/Not Resolved]
  - Pulmonary embolism [Not Recovered/Not Resolved]
  - Pyrexia [Not Recovered/Not Resolved]
  - Rash [Not Recovered/Not Resolved]
  - Rectal haemorrhage [Unknown]
  - Rhinitis [Not Recovered/Not Resolved]
  - Somnolence [Not Recovered/Not Resolved]
  - Steroid dependence [Not Recovered/Not Resolved]
  - Stress [Not Recovered/Not Resolved]
  - Swollen tongue [Not Recovered/Not Resolved]
  - Tinnitus [Not Recovered/Not Resolved]
  - Tubulointerstitial nephritis [Not Recovered/Not Resolved]
  - Vertigo [Not Recovered/Not Resolved]
  - Abdominal discomfort [Not Recovered/Not Resolved]
  - Accidental overdose [Not Recovered/Not Resolved]
  - Adverse drug reaction [Not Recovered/Not Resolved]
  - Alcohol poisoning [Not Recovered/Not Resolved]
  - Arthritis [Not Recovered/Not Resolved]
  - Burns second degree [Not Recovered/Not Resolved]
  - COVID-19 [Not Recovered/Not Resolved]
  - Cardiac murmur [Not Recovered/Not Resolved]
  - Catarrh [Not Recovered/Not Resolved]
  - Cerebrovascular accident [Not Recovered/Not Resolved]
  - Colitis ulcerative [Unknown]
  - Confusional state [Not Recovered/Not Resolved]
  - Deep vein thrombosis [Unknown]
  - Depression [Not Recovered/Not Resolved]
  - Dysgeusia [Not Recovered/Not Resolved]
  - Eczema [Not Recovered/Not Resolved]
  - Fatigue [Not Recovered/Not Resolved]
  - Gingival pain [Not Recovered/Not Resolved]
  - Haematochezia [Not Recovered/Not Resolved]
  - Headache [Not Recovered/Not Resolved]
  - Hypopnoea [Not Recovered/Not Resolved]
  - Impaired work ability [Not Recovered/Not Resolved]
  - Inappropriate schedule of product administration [Not Recovered/Not Resolved]
  - Intentional product use issue [Not Recovered/Not Resolved]
  - Loss of personal independence in daily activities [Not Recovered/Not Resolved]
  - Medication error [Not Recovered/Not Resolved]
  - Migraine [Not Recovered/Not Resolved]
  - Nightmare [Not Recovered/Not Resolved]
